FAERS Safety Report 4734568-2 (Version None)
Quarter: 2005Q3

REPORT INFORMATION
  Report Type: 
  Country: None (occurrence: None)
  Receive Date: 20050729
  Receipt Date: 20050718
  Transmission Date: 20060218
  Serious: Yes (Other)
  Sender: FDA-Public Use
  Company Number: HQWYE169112JUL05

PATIENT
  Age: 54 Year
  Sex: Female
  Weight: 54.48 kg

DRUGS (3)
  1. PREMPRO [Suspect]
  2. CYCRIN [Suspect]
  3. ESTRATAB [Suspect]

REACTIONS (7)
  - BREAST CANCER FEMALE [None]
  - BREAST CANCER IN SITU [None]
  - METASTASES TO BONE [None]
  - METASTASES TO HEART [None]
  - METASTASES TO PLEURA [None]
  - OESTROGEN RECEPTOR ASSAY POSITIVE [None]
  - PROGESTERONE RECEPTOR ASSAY POSITIVE [None]
